FAERS Safety Report 5912376-4 (Version None)
Quarter: 2008Q4

REPORT INFORMATION
  Report Type: 
  Country: None (occurrence: None)
  Receive Date: 20081003
  Receipt Date: 20080919
  Transmission Date: 20090506
  Serious: Yes (Other)
  Sender: FDA-Public Use
  Company Number: 034126

PATIENT
  Sex: Male

DRUGS (1)
  1. CLARAVIS [Suspect]
     Dosage: 40 MG, QD, ORAL
     Route: 048

REACTIONS (2)
  - DEPRESSION [None]
  - SUICIDAL IDEATION [None]
